FAERS Safety Report 13873948 (Version 1)
Quarter: 2017Q3

REPORT INFORMATION
  Report Type: Spontaneous
  Country: FR (occurrence: FR)
  Receive Date: 20170816
  Receipt Date: 20170816
  Transmission Date: 20171127
  Serious: Yes (Hospitalization)
  Sender: FDA-Public Use
  Company Number: PHHY2017FR118881

PATIENT
  Age: 76 Year
  Sex: Female

DRUGS (9)
  1. ZYKADIA [Suspect]
     Active Substance: CERITINIB
     Indication: COLORECTAL CANCER METASTATIC
     Dosage: 150 MG, QD (3 DF)
     Route: 048
     Dates: start: 20170718, end: 20170721
  2. ZYKADIA [Interacting]
     Active Substance: CERITINIB
     Indication: METASTASES TO LIVER
  3. LEVOTHYROX [Concomitant]
     Active Substance: LEVOTHYROXINE
     Indication: THYROIDECTOMY
     Dosage: 1 DF, QD
     Route: 048
  4. XARELTO [Concomitant]
     Active Substance: RIVAROXABAN
     Indication: ATRIAL FIBRILLATION
     Dosage: 15 MG, QD
     Route: 048
     Dates: end: 20170721
  5. XARELTO [Concomitant]
     Active Substance: RIVAROXABAN
     Dosage: UNK
     Route: 048
     Dates: start: 20170726
  6. ZYKADIA [Interacting]
     Active Substance: CERITINIB
     Indication: METASTASES TO BONE
  7. AUGMENTIN [Concomitant]
     Active Substance: AMOXICILLIN\CLAVULANATE POTASSIUM
     Indication: INFECTION
     Dosage: 3 DF, QD (1G/125MG)
     Route: 048
     Dates: start: 20170706, end: 20170721
  8. ZYKADIA [Interacting]
     Active Substance: CERITINIB
     Indication: ADENOCARCINOMA OF COLON
     Dosage: UNK
     Route: 048
     Dates: start: 20170725
  9. CORDARONE [Interacting]
     Active Substance: AMIODARONE HYDROCHLORIDE
     Indication: ATRIAL FIBRILLATION
     Dosage: 200 MG, QW (5 DF)
     Route: 048
     Dates: end: 20170721

REACTIONS (2)
  - Drug interaction [Recovered/Resolved with Sequelae]
  - Sinus bradycardia [Recovered/Resolved with Sequelae]

NARRATIVE: CASE EVENT DATE: 20170721
